FAERS Safety Report 9209479 (Version 1)
Quarter: 2013Q2

REPORT INFORMATION
  Report Type: Spontaneous
  Country: US (occurrence: None)
  Receive Date: 20130403
  Receipt Date: 20130403
  Transmission Date: 20140414
  Serious: Yes (Other)
  Sender: FDA-Public Use
  Company Number: None

PATIENT
  Sex: 0

DRUGS (1)
  1. ESTRADIOL [Suspect]
     Dates: start: 20120806, end: 20120807

REACTIONS (7)
  - Burning sensation [None]
  - Pruritus [None]
  - Breast tenderness [None]
  - Product odour abnormal [None]
  - Product contamination [None]
  - Application site rash [None]
  - Rash erythematous [None]
